FAERS Safety Report 17285113 (Version 1)
Quarter: 2020Q1

REPORT INFORMATION
  Report Type: Spontaneous
  Country: US (occurrence: US)
  Receive Date: 20200117
  Receipt Date: 20200117
  Transmission Date: 20200409
  Serious: No
  Sender: FDA-Public Use
  Company Number: US-TARO-2019TAR00614

PATIENT
  Sex: Female
  Weight: 67.12 kg

DRUGS (2)
  1. KETOCONAZOLE CREAM 2% [Suspect]
     Active Substance: KETOCONAZOLE
     Dosage: ^ENOUGH TO COVER THE AREAS ON HER FEET^, 1X/DAY
     Route: 061
     Dates: start: 2019
  2. KETOCONAZOLE CREAM 2% [Suspect]
     Active Substance: KETOCONAZOLE
     Indication: SKIN EXFOLIATION
     Dosage: ^ENOUGH TO COVER THE AREAS ON HER FEET^, 1X/DAY
     Route: 061
     Dates: start: 201905, end: 2019

REACTIONS (3)
  - Drug ineffective for unapproved indication [Not Recovered/Not Resolved]
  - Product quality issue [Not Recovered/Not Resolved]
  - Therapeutic response unexpected [Recovered/Resolved]

NARRATIVE: CASE EVENT DATE: 2019
